FAERS Safety Report 4780507-8 (Version None)
Quarter: 2005Q3

REPORT INFORMATION
  Report Type: 
  Country: None (occurrence: None)
  Receive Date: 20050926
  Receipt Date: 20050913
  Transmission Date: 20060218
  Serious: Yes (Hospitalization)
  Sender: FDA-Public Use
  Company Number: 2005BI008838

PATIENT
  Age: 73 Year
  Sex: Female
  Weight: 58.9676 kg

DRUGS (8)
  1. AVONEX [Suspect]
     Indication: MULTIPLE SCLEROSIS
     Dosage: 30 UG; QW; IM; 30 UG; QW; IM
     Route: 030
     Dates: start: 20040731, end: 20050425
  2. AVONEX [Suspect]
     Indication: MULTIPLE SCLEROSIS
     Dosage: 30 UG; QW; IM; 30 UG; QW; IM
     Route: 030
     Dates: start: 20050525
  3. LEVOXYL [Concomitant]
  4. TRIMETHOPRIM [Concomitant]
  5. PRAVACHOL [Concomitant]
  6. ACTONEL [Concomitant]
  7. TOPROL-XL [Concomitant]
  8. AXERT [Concomitant]

REACTIONS (10)
  - BLOOD ELECTROLYTES ABNORMAL [None]
  - CARDIAC DISORDER [None]
  - CONDITION AGGRAVATED [None]
  - ELECTROCARDIOGRAM ABNORMAL [None]
  - INFECTION [None]
  - MULTIPLE SCLEROSIS [None]
  - MUSCLE DISORDER [None]
  - SEPSIS [None]
  - URINARY TRACT INFECTION [None]
  - UROSEPSIS [None]
